FAERS Safety Report 9784036 (Version 2)
Quarter: 2014Q1

REPORT INFORMATION
  Report Type: Spontaneous
  Country: JP (occurrence: JP)
  Receive Date: 20131226
  Receipt Date: 20140207
  Transmission Date: 20141002
  Serious: Yes (Other)
  Sender: FDA-Public Use
  Company Number: JP-ABBVIE-13P-087-1182394-00

PATIENT
  Age: 27 Year
  Sex: Female
  Weight: 49.65 kg

DRUGS (24)
  1. ULTANE [Suspect]
     Indication: ANAESTHESIA
     Route: 055
     Dates: start: 20131123, end: 20131123
  2. LACTATED RINGERS [Concomitant]
     Indication: POSTOPERATIVE CARE
     Route: 041
     Dates: start: 20131123, end: 20131124
  3. ADONA [Concomitant]
     Indication: POSTOPERATIVE CARE
     Route: 041
     Dates: start: 20131123, end: 20131124
  4. TRANSAMIN [Concomitant]
     Indication: POSTOPERATIVE CARE
     Route: 041
     Dates: start: 20131123, end: 20131124
  5. GLUCOSE [Concomitant]
     Indication: POSTOPERATIVE CARE
     Route: 042
     Dates: start: 20131123, end: 20131130
  6. FESIN [Concomitant]
     Indication: POSTOPERATIVE CARE
     Route: 042
     Dates: start: 20131123, end: 20131130
  7. LACTEC D [Concomitant]
     Indication: POSTOPERATIVE CARE
     Route: 041
     Dates: start: 20131123, end: 20131125
  8. SOLDEM 3A [Concomitant]
     Indication: POSTOPERATIVE CARE
     Route: 041
     Dates: start: 20131123, end: 20131126
  9. FENTANYL [Concomitant]
     Indication: POSTOPERATIVE CARE
     Route: 041
     Dates: start: 20131123, end: 20131123
  10. ULTIVA [Concomitant]
     Indication: POSTOPERATIVE CARE
     Route: 041
     Dates: start: 20131123, end: 20131123
  11. LIDOCAINE [Concomitant]
     Indication: SURGERY
     Route: 061
  12. POVIDONE-IODINE [Concomitant]
     Indication: SURGERY
     Route: 061
  13. ISOTONIC SODIUM CHLORIDE SOLUTION [Concomitant]
     Indication: SURGERY
  14. GLUCOSE/ACETATED RINGER^S SOLUTION [Concomitant]
     Indication: SURGERY
  15. CEFAZOLIN SODIUM [Concomitant]
     Indication: SURGERY
  16. DROPERIDOL [Concomitant]
     Indication: ANAESTHESIA
  17. ROCURONIUM BROMIDE [Concomitant]
     Indication: ANAESTHESIA
     Route: 042
  18. MIDAZOLAM [Concomitant]
     Indication: ANAESTHESIA
     Route: 050
  19. ATROPINE SULFATE HYDRATE [Concomitant]
     Indication: ANAESTHESIA
     Route: 050
  20. PHENYLEPHRINE HYDROCHLORIDE [Concomitant]
     Indication: ANAESTHESIA
     Route: 050
  21. EPHEDRINE HYDROCHLORIDE [Concomitant]
     Indication: ANAESTHESIA
     Route: 050
  22. SUGAMMADEX SODIUM [Concomitant]
     Indication: ANAESTHESIA
     Route: 042
  23. FLURBIPROFEN AXETIL [Concomitant]
     Indication: ANAESTHESIA
  24. OXYGEN [Concomitant]
     Indication: PRODUCT USED FOR UNKNOWN INDICATION
     Dates: start: 20131123

REACTIONS (7)
  - Ovarian haemorrhage [Unknown]
  - Diabetes insipidus [Recovering/Resolving]
  - Hyposthenuria [Unknown]
  - Polyuria [Unknown]
  - Urine analysis abnormal [Unknown]
  - Polydipsia psychogenic [Unknown]
  - Urine output decreased [Unknown]
